FAERS Safety Report 24833174 (Version 6)
Quarter: 2025Q4

REPORT INFORMATION
  Report Type: Report from Study
  Country: EU (occurrence: EU)
  Receive Date: 20250111
  Receipt Date: 20251013
  Transmission Date: 20260118
  Serious: Yes (Hospitalization, Other)
  Sender: ABBVIE
  Company Number: EU-ABBVIE-5856361

PATIENT
  Age: 61 Year
  Sex: Female

DRUGS (9)
  1. RINVOQ [Suspect]
     Active Substance: UPADACITINIB
     Indication: Rheumatoid arthritis
     Route: 048
     Dates: start: 202002
  2. HYDROXYCHLOROQUINE [Suspect]
     Active Substance: HYDROXYCHLOROQUINE
     Indication: Product used for unknown indication
     Dosage: FREQUENCY TEXT: 400MG/D
     Route: 065
  3. SULFASALAZINE [Suspect]
     Active Substance: SULFASALAZINE
     Indication: Product used for unknown indication
     Dosage: FREQUENCY TEXT: 1500MG/D
     Route: 065
  4. SULFASALAZINE [Suspect]
     Active Substance: SULFASALAZINE
     Indication: Product used for unknown indication
     Route: 065
     Dates: start: 2021
  5. SULFASALAZINE [Suspect]
     Active Substance: SULFASALAZINE
     Indication: Product used for unknown indication
     Route: 065
     Dates: start: 2022, end: 2022
  6. SULFASALAZINE [Suspect]
     Active Substance: SULFASALAZINE
     Indication: Product used for unknown indication
     Route: 065
     Dates: start: 2022
  7. SULFASALAZINE [Suspect]
     Active Substance: SULFASALAZINE
     Indication: Product used for unknown indication
     Dosage: FREQUENCY TEXT: 1500MG/D
     Route: 065
     Dates: start: 2023, end: 2024
  8. SULFASALAZINE [Suspect]
     Active Substance: SULFASALAZINE
     Indication: Product used for unknown indication
     Dosage: FREQUENCY TEXT: 1500MG/D
     Route: 065
     Dates: start: 2024
  9. CHLOROQUINE [Suspect]
     Active Substance: CHLOROQUINE
     Indication: Product used for unknown indication
     Dosage: FREQUENCY TEXT: 400MG/D
     Route: 065

REACTIONS (6)
  - Obesity [Unknown]
  - Abdominal pain [Recovered/Resolved]
  - Overweight [Unknown]
  - Abdominal wall abscess [Unknown]
  - Meniscus injury [Unknown]
  - Nasopharyngitis [Unknown]

NARRATIVE: CASE EVENT DATE: 20240101
